FAERS Safety Report 7054621-0 (Version None)
Quarter: 2010Q4

REPORT INFORMATION
  Report Type: 
  Country: None (occurrence: None)
  Receive Date: 20101015
  Receipt Date: 20101001
  Transmission Date: 20110411
  Serious: Yes (Hospitalization)
  Sender: FDA-Public Use
  Company Number: 2010SP002521

PATIENT
  Age: 70 Year
  Sex: Female
  Weight: 81.6475 kg

DRUGS (18)
  1. ARFORMOTEROL TARTRATE [Suspect]
     Indication: CHRONIC OBSTRUCTIVE PULMONARY DISEASE
     Dosage: 15 UG; INHALATION
     Route: 055
     Dates: start: 20100806, end: 20100921
  2. AMIODARONE HCL [Concomitant]
  3. DILTIAZEM [Concomitant]
  4. LEXAPRO [Concomitant]
  5. ZETIA [Concomitant]
  6. IRON SULFATETHIAMIN COMPOUND TAB [Concomitant]
  7. HUMALIN [Concomitant]
  8. LISINOPRIL [Concomitant]
  9. PERCOCET [Concomitant]
  10. OXYGEN [Concomitant]
  11. METFORMIN [Concomitant]
  12. PROTONIX [Concomitant]
  13. AVANDIA [Concomitant]
  14. SPIRIVA [Concomitant]
  15. PULMICORT [Concomitant]
  16. XANAX [Concomitant]
  17. VENTOLIN [Concomitant]
  18. SYMBICORT [Concomitant]

REACTIONS (12)
  - AORTIC VALVE STENOSIS [None]
  - BARRETT'S OESOPHAGUS [None]
  - CARDIAC FAILURE CONGESTIVE [None]
  - ELECTROCARDIOGRAM QT PROLONGED [None]
  - GASTRITIS EROSIVE [None]
  - HYPERTENSIVE CRISIS [None]
  - LEFT ATRIAL DILATATION [None]
  - LEFT VENTRICULAR HYPERTROPHY [None]
  - LOBAR PNEUMONIA [None]
  - LUNG INFILTRATION [None]
  - MITRAL VALVE CALCIFICATION [None]
  - MITRAL VALVE INCOMPETENCE [None]
